FAERS Safety Report 4929328-3 (Version None)
Quarter: 2006Q1

REPORT INFORMATION
  Report Type: 
  Country: None (occurrence: None)
  Receive Date: 20060223
  Receipt Date: 20060201
  Transmission Date: 20060701
  Serious: Yes (Hospitalization)
  Sender: FDA-Public Use
  Company Number: US200602000777

PATIENT
  Sex: Male

DRUGS (6)
  1. ZYPREXA [Suspect]
     Dosage: SEE IMAGE
     Route: 048
     Dates: end: 20060111
  2. ZYPREXA [Suspect]
     Dosage: SEE IMAGE
     Route: 048
     Dates: start: 20060111
  3. ATIVAN [Concomitant]
  4. THORAZINE (CHLOPROMAZINE HYDROCHLORIDE) [Concomitant]
  5. TIMOPTIC [Concomitant]
  6. SEPTRA [Concomitant]

REACTIONS (2)
  - DEEP VEIN THROMBOSIS [None]
  - PYREXIA [None]
